FAERS Safety Report 4676392-5 (Version None)
Quarter: 2005Q2

REPORT INFORMATION
  Report Type: 
  Country: None (occurrence: None)
  Receive Date: 20050527
  Receipt Date: 20050303
  Transmission Date: 20051028
  Serious: No
  Sender: FDA-Public Use
  Company Number: US-GLAXOSMITHKLINE-A0548207A

PATIENT
  Sex: Male

DRUGS (3)
  1. WELLBUTRIN XL [Suspect]
     Indication: ANXIETY
     Dosage: 150MG PER DAY
     Route: 048
     Dates: start: 20040801
  2. CLONIDINE [Concomitant]
  3. XANAX [Concomitant]

REACTIONS (2)
  - CONSTIPATION [None]
  - DRUG ADMINISTRATION ERROR [None]
